FAERS Safety Report 7519462-6 (Version None)
Quarter: 2011Q2

REPORT INFORMATION
  Report Type: 
  Country: None (occurrence: None)
  Receive Date: 20110602
  Receipt Date: 20110525
  Transmission Date: 20111010
  Serious: Yes (Other)
  Sender: FDA-Public Use
  Company Number: DE-GILEAD-2011-0039985

PATIENT
  Sex: Female

DRUGS (6)
  1. ISOSORBIDE DINITRATE [Concomitant]
     Route: 048
  2. DIGOXIN [Concomitant]
     Route: 048
  3. RAMIPRIL [Concomitant]
     Route: 048
  4. RANEXA [Suspect]
     Indication: CORONARY ARTERY DISEASE
     Route: 048
     Dates: start: 20110215, end: 20110301
  5. FUROSEMIDE [Concomitant]
     Route: 048
  6. GLYCERYL TRINITRAT [Concomitant]
     Route: 055

REACTIONS (5)
  - FEELING DRUNK [None]
  - HALLUCINATION [None]
  - DYSARTHRIA [None]
  - CONFUSIONAL STATE [None]
  - VOMITING [None]
